FAERS Safety Report 16508750 (Version 1)
Quarter: 2019Q3

REPORT INFORMATION
  Report Type: Spontaneous
  Country: US (occurrence: US)
  Receive Date: 20190702
  Receipt Date: 20190702
  Transmission Date: 20191004
  Serious: No
  Sender: FDA-Public Use
  Company Number: US-ROCHE-2231639

PATIENT

DRUGS (4)
  1. XELODA [Suspect]
     Active Substance: CAPECITABINE
     Indication: PRODUCT USED FOR UNKNOWN INDICATION
     Route: 065
     Dates: start: 201805
  2. XELODA [Suspect]
     Active Substance: CAPECITABINE
     Dosage: 6 PILLS
     Route: 065
     Dates: start: 201808
  3. MEDROL [Suspect]
     Active Substance: METHYLPREDNISOLONE
     Indication: PRODUCT USED FOR UNKNOWN INDICATION
     Route: 065
  4. XELODA [Suspect]
     Active Substance: CAPECITABINE
     Dosage: 4 PILLS
     Route: 065
     Dates: start: 201811

REACTIONS (6)
  - Skin laceration [Not Recovered/Not Resolved]
  - Erythema [Unknown]
  - Nail infection [Unknown]
  - Neuropathy peripheral [Unknown]
  - Paraesthesia [Unknown]
  - Temperature intolerance [Unknown]

NARRATIVE: CASE EVENT DATE: 201808
